FAERS Safety Report 14741542 (Version 1)
Quarter: 2018Q2

REPORT INFORMATION
  Report Type: Spontaneous
  Country: US (occurrence: US)
  Receive Date: 20180410
  Receipt Date: 20180410
  Transmission Date: 20180711
  Serious: No
  Sender: FDA-Public Use
  Company Number: US-LEXICON PHARMACEUTICALS, INC-18-1606-00258

PATIENT
  Sex: Female

DRUGS (23)
  1. TEMAZEPAM. [Concomitant]
     Active Substance: TEMAZEPAM
  2. AMLODIPINE [Concomitant]
     Active Substance: AMLODIPINE BESYLATE
  3. PROMETHAZINE [Concomitant]
     Active Substance: PROMETHAZINE\PROMETHAZINE HYDROCHLORIDE
  4. ASPIRIN. [Concomitant]
     Active Substance: ASPIRIN
  5. POTASSIUM CHLORIDE. [Concomitant]
     Active Substance: POTASSIUM CHLORIDE
  6. VENTOLIN [Concomitant]
     Active Substance: ALBUTEROL SULFATE
  7. LEVOTHYROXINE. [Concomitant]
     Active Substance: LEVOTHYROXINE
  8. LUMIGAN [Concomitant]
     Active Substance: BIMATOPROST
  9. ALBUTEROL. [Concomitant]
     Active Substance: ALBUTEROL
  10. FLUTICASONE PROPIONATE. [Concomitant]
     Active Substance: FLUTICASONE PROPIONATE
  11. OXYCODONE [Concomitant]
     Active Substance: OXYCODONE
  12. TELOTRISTAT ETHYL [Suspect]
     Active Substance: TELOTRISTAT ETHYL
     Indication: CARCINOID TUMOUR
     Route: 048
     Dates: start: 20171018
  13. DULOXETINE. [Concomitant]
     Active Substance: DULOXETINE
  14. ALPRAZOLAM. [Concomitant]
     Active Substance: ALPRAZOLAM
  15. OPIUM. [Concomitant]
     Active Substance: OPIUM
  16. OCTREOTIDE. [Concomitant]
     Active Substance: OCTREOTIDE
  17. TACROLIMUS. [Concomitant]
     Active Substance: TACROLIMUS
  18. MAGNESIUM [Concomitant]
     Active Substance: MAGNESIUM
  19. BRIMONIDINE [Concomitant]
     Active Substance: BRIMONIDINE TARTRATE
  20. BETAXOLOL. [Concomitant]
     Active Substance: BETAXOLOL
  21. LOMOTIL [Concomitant]
     Active Substance: ATROPINE SULFATE\DIPHENOXYLATE HYDROCHLORIDE
  22. PANCREASE MT [Concomitant]
     Active Substance: PANCRELIPASE
  23. BACTRIM [Concomitant]
     Active Substance: SULFAMETHOXAZOLE\TRIMETHOPRIM

REACTIONS (4)
  - Constipation [Unknown]
  - Anxiety [Unknown]
  - Flushing [Unknown]
  - Fatigue [Unknown]
